FAERS Safety Report 16797240 (Version 2)
Quarter: 2020Q1

REPORT INFORMATION
  Report Type: Spontaneous
  Country: US (occurrence: US)
  Receive Date: 20190912
  Receipt Date: 20200205
  Transmission Date: 20200409
  Serious: No
  Sender: FDA-Public Use
  Company Number: US-JNJFOC-20190908501

PATIENT
  Age: 75 Year
  Sex: Female
  Weight: 65.83 kg

DRUGS (1)
  1. WOMENS ROGAINE UNSCENTED [Suspect]
     Active Substance: MINOXIDIL
     Indication: ALOPECIA
     Dosage: MAYBE ABOUT THE SIZE OF A GRAPE OR BLUEBERRY ONCE
     Route: 061
     Dates: start: 20190331, end: 20190612

REACTIONS (3)
  - Cold sweat [Recovered/Resolved]
  - Dyspnoea [Recovering/Resolving]
  - Incorrect dose administered [Unknown]

NARRATIVE: CASE EVENT DATE: 20190331
